FAERS Safety Report 19997337 (Version 3)
Quarter: 2022Q1

REPORT INFORMATION
  Report Type: Spontaneous
  Country: TW (occurrence: TW)
  Receive Date: 20211025
  Receipt Date: 20220125
  Transmission Date: 20220423
  Serious: Yes (Life-Threatening, Hospitalization, Other)
  Sender: FDA-Public Use
  Company Number: TW-BRISTOL-MYERS SQUIBB COMPANY-BMS-2021-109436

PATIENT
  Age: 77 Year
  Sex: Female
  Weight: 50 kg

DRUGS (2)
  1. OPDIVO [Suspect]
     Active Substance: NIVOLUMAB
     Indication: Hepatic cancer
     Dosage: 100 MILLIGRAM, Q2WK
     Route: 041
     Dates: start: 20210823
  2. LENVATINIB [Suspect]
     Active Substance: LENVATINIB
     Indication: Product used for unknown indication
     Dosage: 10 MILLIGRAM, QOD
     Route: 048
     Dates: start: 20210310

REACTIONS (7)
  - Respiratory distress [Not Recovered/Not Resolved]
  - Asthenia [Unknown]
  - Immune-mediated lung disease [Unknown]
  - Pneumocystis jirovecii pneumonia [Unknown]
  - Hypoxia [Unknown]
  - Altered state of consciousness [Unknown]
  - Prescribed underdose [Unknown]

NARRATIVE: CASE EVENT DATE: 20211015
